FAERS Safety Report 5331107-2 (Version None)
Quarter: 2007Q2

REPORT INFORMATION
  Report Type: 
  Country: None (occurrence: None)
  Receive Date: 20070518
  Receipt Date: 20070518
  Transmission Date: 20071010
  Serious: Yes (Life-Threatening)
  Sender: FDA-Public Use
  Company Number: None

PATIENT
  Sex: Male
  Weight: 79 kg

DRUGS (13)
  1. BEVACIZUMAB Q 3 WEEKS [Suspect]
     Indication: OESOPHAGEAL CANCER METASTATIC
     Dosage: 10MG/MG2 IV BOLUS
     Route: 040
     Dates: start: 20061024, end: 20070327
  2. DOCETAXEL D1,D8 OF 21D CYCLE [Suspect]
     Indication: OESOPHAGEAL CANCER METASTATIC
     Dosage: 30MG/M2 IV BOLUS
     Route: 040
     Dates: start: 20061024, end: 20070403
  3. CISPLATIN [Suspect]
     Indication: OESOPHAGEAL CANCER METASTATIC
     Dosage: 25MG/MG2 IV BOLUS
     Route: 040
     Dates: start: 20061024, end: 20070403
  4. IRINOTECAN HCL [Suspect]
     Indication: OESOPHAGEAL CANCER METASTATIC
     Dosage: 50MG/M2 IV BOLUS*
     Route: 040
     Dates: start: 20061024, end: 20070403
  5. ATIVAN [Concomitant]
  6. DECADRON [Concomitant]
  7. EMEND [Concomitant]
  8. LACTLOSE [Concomitant]
  9. LOMOTIL [Concomitant]
  10. METOCLOPRAMIDE HCL [Concomitant]
  11. OMEPRAZOLE [Concomitant]
  12. MULTI-VITAMIN [Concomitant]
  13. SIMETHACONE [Concomitant]

REACTIONS (3)
  - ATELECTASIS [None]
  - PULMONARY EMBOLISM [None]
  - PULMONARY INFARCTION [None]
